FAERS Safety Report 22372232 (Version 1)
Quarter: 2023Q2

REPORT INFORMATION
  Report Type: Spontaneous
  Country: US (occurrence: US)
  Receive Date: 20230526
  Receipt Date: 20230526
  Transmission Date: 20230721
  Serious: No
  Sender: FDA-Public Use
  Company Number: US-BANNER LIFE SCIENCES, LLC-2023BAN000031

PATIENT

DRUGS (1)
  1. BAFIERTAM [Suspect]
     Active Substance: MONOMETHYL FUMARATE
     Indication: Multiple sclerosis
     Dosage: 95 MG 2 CAPSULES 2 TIMES A DAY
     Route: 048
     Dates: start: 20210318

REACTIONS (18)
  - Fall [Unknown]
  - Gait disturbance [Unknown]
  - Back pain [Unknown]
  - Balance disorder [Unknown]
  - Constipation [Unknown]
  - Dizziness [Unknown]
  - Fatigue [Unknown]
  - Headache [Unknown]
  - Sleep disorder [Unknown]
  - Hyperhidrosis [Unknown]
  - Paraesthesia [Unknown]
  - Micturition disorder [Unknown]
  - Bladder disorder [Unknown]
  - Abdominal discomfort [Unknown]
  - Cognitive disorder [Unknown]
  - Musculoskeletal stiffness [Unknown]
  - Muscle spasticity [Unknown]
  - Sensory disturbance [Unknown]

NARRATIVE: CASE EVENT DATE: 20230201
